FAERS Safety Report 25791424 (Version 2)
Quarter: 2025Q4

REPORT INFORMATION
  Report Type: Spontaneous
  Country: US (occurrence: US)
  Receive Date: 20250911
  Receipt Date: 20251024
  Transmission Date: 20260117
  Serious: Yes (Death, Hospitalization, Other)
  Sender: MERCK SHARP & DOHME LLC
  Company Number: US-009507513-2326575

PATIENT
  Sex: Male

DRUGS (9)
  1. KEYTRUDA [Suspect]
     Active Substance: PEMBROLIZUMAB
     Indication: Metastatic malignant melanoma
     Dosage: 2 MG/KG, Q3W
     Dates: start: 202304, end: 202304
  2. KEYTRUDA [Suspect]
     Active Substance: PEMBROLIZUMAB
     Indication: Metastatic malignant melanoma
     Dosage: 2 MG/KG, Q3W, 4TH CYCLE
     Dates: start: 2023, end: 2023
  3. KEYTRUDA [Suspect]
     Active Substance: PEMBROLIZUMAB
     Indication: Metastatic malignant melanoma
     Dosage: 2 MG/KG, Q3W, 5TH CYCLE
     Dates: start: 2023, end: 2023
  4. KEYTRUDA [Suspect]
     Active Substance: PEMBROLIZUMAB
     Indication: Metastatic malignant melanoma
     Dosage: 2 MG/KG, Q3W, 6TH CYCLE
     Dates: start: 2023, end: 2023
  5. KEYTRUDA [Suspect]
     Active Substance: PEMBROLIZUMAB
     Indication: Metastatic malignant melanoma
     Dosage: 2 MG/KG, Q3W, CYCLE 10
     Dates: start: 2023, end: 2023
  6. KEYTRUDA [Suspect]
     Active Substance: PEMBROLIZUMAB
     Indication: Metastatic malignant melanoma
     Dosage: 2 MG/KG, Q3W, CYCLE 11
     Dates: start: 2023, end: 2023
  7. KEYTRUDA [Suspect]
     Active Substance: PEMBROLIZUMAB
     Indication: Metastatic malignant melanoma
     Dosage: 2 MG/KG, Q3W
     Dates: start: 202405, end: 202405
  8. DABRAFENIB [Suspect]
     Active Substance: DABRAFENIB
     Indication: Metastatic malignant melanoma
     Dosage: 120 MG, BID DOSED CONTINOUSLY
     Route: 048
     Dates: start: 202304, end: 202408
  9. TRAMETINIB [Suspect]
     Active Substance: TRAMETINIB
     Indication: Metastatic malignant melanoma
     Dosage: 2 MG, QD DOSED CONTINOUSLY
     Route: 048
     Dates: start: 202304, end: 202408

REACTIONS (12)
  - Malignant neoplasm progression [Fatal]
  - Systemic inflammatory response syndrome [Recovered/Resolved]
  - Adrenal insufficiency [Unknown]
  - Colitis [Not Recovered/Not Resolved]
  - Hypothyroidism [Unknown]
  - Product use issue [Unknown]
  - Drug intolerance [Unknown]
  - Cytokine release syndrome [Unknown]
  - Thyroiditis [Recovered/Resolved]
  - Sepsis [Unknown]
  - Systemic inflammatory response syndrome [Recovered/Resolved]
  - Hospice care [Unknown]

NARRATIVE: CASE EVENT DATE: 20230101
